FAERS Safety Report 24443974 (Version 2)
Quarter: 2024Q4

REPORT INFORMATION
  Report Type: Report from Study
  Country: US (occurrence: US)
  Receive Date: 20241016
  Receipt Date: 20241017
  Transmission Date: 20250115
  Serious: No
  Sender: ROCHE
  Company Number: US-ROCHE-2680911

PATIENT
  Age: 56 Year
  Sex: Male

DRUGS (1)
  1. RITUXAN [Suspect]
     Active Substance: RITUXIMAB
     Indication: Granulomatosis with polyangiitis
     Dosage: INFUSE 1000 MG ONCE EVERY 6 MONTHS.?DATE OF TREATMENT REPORTED ON 14/JUN/2021 AND 23/OCT/2023.
     Route: 042
     Dates: start: 20210614

REACTIONS (2)
  - Off label use [Unknown]
  - No adverse event [Unknown]
